FAERS Safety Report 5561433-3 (Version None)
Quarter: 2007Q4

REPORT INFORMATION
  Report Type: 
  Country: None (occurrence: None)
  Receive Date: 20071215
  Receipt Date: 20071022
  Transmission Date: 20080405
  Serious: No
  Sender: FDA-Public Use
  Company Number: US-AMGEN-KDL249105

PATIENT
  Sex: Male

DRUGS (2)
  1. ENBREL [Suspect]
     Indication: RHEUMATOID ARTHRITIS
     Route: 058
     Dates: start: 20070720
  2. ARAVA [Concomitant]
     Dates: start: 20030101

REACTIONS (2)
  - NASOPHARYNGITIS [None]
  - PRODUCTIVE COUGH [None]
